FAERS Safety Report 20658585 (Version 1)
Quarter: 2022Q1

REPORT INFORMATION
  Report Type: Spontaneous
  Country: US (occurrence: None)
  Receive Date: 20220330
  Receipt Date: 20220330
  Transmission Date: 20220423
  Serious: Yes (Death)
  Sender: FDA-Public Use
  Company Number: None

PATIENT
  Age: 72 Year
  Sex: Female

DRUGS (16)
  1. HUMIRA [Suspect]
     Active Substance: ADALIMUMAB
     Indication: Rheumatoid arthritis
     Dosage: FREQUENCY : WEEKLY;?
     Route: 058
     Dates: start: 20220325
  2. clotrimazole lozenges [Concomitant]
  3. MIRTAZAPINE [Concomitant]
     Active Substance: MIRTAZAPINE
  4. HYDROXYCHLOROQUINE [Concomitant]
     Active Substance: HYDROXYCHLOROQUINE
  5. SYMBICORT [Concomitant]
     Active Substance: BUDESONIDE\FORMOTEROL FUMARATE DIHYDRATE
  6. BENADRYL [Concomitant]
     Active Substance: DIPHENHYDRAMINE HYDROCHLORIDE
  7. DOCUSATE [Concomitant]
     Active Substance: DOCUSATE
  8. BUSPIRONE [Concomitant]
     Active Substance: BUSPIRONE HYDROCHLORIDE
  9. LATANOPROST [Concomitant]
     Active Substance: LATANOPROST
  10. LATANOPROST [Concomitant]
     Active Substance: LATANOPROST
  11. ALBUTEROL [Concomitant]
     Active Substance: ALBUTEROL
  12. METOPROLOL [Concomitant]
     Active Substance: METOPROLOL
  13. Lumiqan [Concomitant]
  14. hvdrocodone/APAP [Concomitant]
  15. PREDNISONE [Concomitant]
     Active Substance: PREDNISONE
  16. Soiriva [Concomitant]

REACTIONS (1)
  - Death [None]

NARRATIVE: CASE EVENT DATE: 20220325
